FAERS Safety Report 9166276 (Version 1)
Quarter: 2013Q1

REPORT INFORMATION
  Report Type: Report from Study
  Country: CA (occurrence: CA)
  Receive Date: 20130315
  Receipt Date: 20130315
  Transmission Date: 20140127
  Serious: Yes (Other)
  Sender: FDA-Public Use
  Company Number: CA-JNJFOC-20130302354

PATIENT
  Age: 65 Year
  Sex: Female
  Weight: 50.3 kg

DRUGS (2)
  1. REMICADE [Suspect]
     Indication: CROHN^S DISEASE
     Route: 042
     Dates: start: 20121126
  2. IMURAN [Concomitant]
     Route: 065

REACTIONS (1)
  - Neoplasm malignant [Recovered/Resolved]
